FAERS Safety Report 4998458-2 (Version None)
Quarter: 2006Q2

REPORT INFORMATION
  Report Type: 
  Country: None (occurrence: None)
  Receive Date: 20060510
  Receipt Date: 20060428
  Transmission Date: 20061013
  Serious: Yes (Hospitalization)
  Sender: FDA-Public Use
  Company Number: FR-GLAXOSMITHKLINE-B0423034A

PATIENT
  Age: 40 Year
  Sex: Male

DRUGS (3)
  1. CIBLOR [Suspect]
     Indication: DRUG USE FOR UNKNOWN INDICATION
     Dosage: 3G PER DAY
     Route: 048
     Dates: start: 20060221
  2. HEXOMEDINE [Suspect]
     Route: 061
     Dates: start: 20060221, end: 20060223
  3. FRAGMIN [Suspect]
     Indication: DRUG USE FOR UNKNOWN INDICATION
     Route: 058
     Dates: start: 20060221, end: 20060223

REACTIONS (8)
  - ECZEMA [None]
  - OEDEMA PERIPHERAL [None]
  - PITTING OEDEMA [None]
  - PRURIGO [None]
  - PYREXIA [None]
  - RASH ERYTHEMATOUS [None]
  - RASH PAPULAR [None]
  - SKIN EXFOLIATION [None]
